FAERS Safety Report 5351014-9 (Version None)
Quarter: 2007Q2

REPORT INFORMATION
  Report Type: 
  Country: None (occurrence: None)
  Receive Date: 20070608
  Receipt Date: 20070529
  Transmission Date: 20071010
  Serious: No
  Sender: FDA-Public Use
  Company Number: US-ELI_LILLY_AND_COMPANY-US200705007278

PATIENT
  Age: 34 Year
  Sex: Female

DRUGS (13)
  1. ZYPREXA [Suspect]
     Indication: SCHIZOAFFECTIVE DISORDER
     Dosage: 10 MG, EACH EVENING
     Route: 048
     Dates: start: 19970101
  2. ZYPREXA [Suspect]
     Dosage: 10 MG, EACH MORNING
     Route: 048
     Dates: start: 20061101
  3. ZYPREXA [Suspect]
     Dosage: 20 MG, EACH EVENING
     Route: 048
     Dates: start: 20061101
  4. INDERAL [Concomitant]
     Dosage: 40 MG, 3/D
     Route: 048
     Dates: start: 19970101
  5. ATIVAN [Concomitant]
     Dosage: 1 MG, 2/D
     Route: 048
  6. ATIVAN [Concomitant]
     Dosage: 1 MG, 3/D
  7. BENADRYL [Concomitant]
     Dosage: 50 MG, EACH EVENING
  8. BENADRYL [Concomitant]
     Dosage: 25 MG, 2/D
  9. MULTIVITAMIN AND MINERAL [Concomitant]
     Dosage: UNK, DAILY (1/D)
  10. LITHIUM CARBONATE [Concomitant]
     Dosage: 300 MG, EACH MORNING
     Dates: start: 20061101
  11. LITHIUM CARBONATE [Concomitant]
     Dosage: 600 MG, EACH EVENING
     Dates: start: 20061101
  12. SYNTHROID [Concomitant]
     Indication: BLOOD THYROID STIMULATING HORMONE INCREASED
     Dosage: 100 MEQ, DAILY (1/D)
     Dates: start: 20061101
  13. BACTROBAN [Concomitant]
     Indication: RASH PUSTULAR
     Dosage: UNK, 2/D
     Dates: start: 20061101

REACTIONS (7)
  - AKATHISIA [None]
  - BLOOD THYROID STIMULATING HORMONE INCREASED [None]
  - BLOOD URINE PRESENT [None]
  - MUSCLE RIGIDITY [None]
  - PRESCRIBED OVERDOSE [None]
  - RESTLESSNESS [None]
  - VOMITING [None]
